FAERS Safety Report 4405591-2 (Version None)
Quarter: 2004Q3

REPORT INFORMATION
  Report Type: 
  Country: None (occurrence: None)
  Receive Date: 20040723
  Receipt Date: 20031010
  Transmission Date: 20050211
  Serious: No
  Sender: FDA-Public Use
  Company Number: US-GLAXOSMITHKLINE-A0429797A

PATIENT
  Age: 64 Year
  Sex: Female

DRUGS (7)
  1. AVANDIA [Suspect]
     Dosage: 4MG PER DAY
     Route: 048
     Dates: start: 20030801
  2. GLUCOVANCE [Concomitant]
  3. HYZAAR [Concomitant]
  4. SINUS MEDICATION [Concomitant]
  5. VIOXX [Concomitant]
  6. ASPIRIN [Concomitant]
  7. DIURETIC [Concomitant]

REACTIONS (1)
  - NERVOUSNESS [None]
